FAERS Safety Report 8382311-0 (Version None)
Quarter: 2012Q2

REPORT INFORMATION
  Report Type: 
  Country: None (occurrence: None)
  Receive Date: 20120524
  Receipt Date: 20120518
  Transmission Date: 20120825
  Serious: Yes (Hospitalization, Other)
  Sender: FDA-Public Use
  Company Number: US-BAYER-2010-001674

PATIENT
  Age: 39 Year
  Sex: Female
  Weight: 118 kg

DRUGS (4)
  1. RELPAX [Concomitant]
  2. YAZ [Suspect]
     Dosage: UNK
     Dates: start: 20070401, end: 20080301
  3. METOPROLOL [Concomitant]
  4. MAXALT [Concomitant]
     Indication: MIGRAINE

REACTIONS (3)
  - GALLBLADDER DISORDER [None]
  - BILIARY DYSKINESIA [None]
  - CHOLECYSTITIS CHRONIC [None]
